FAERS Safety Report 12616451 (Version 2)
Quarter: 2016Q3

REPORT INFORMATION
  Report Type: Spontaneous
  Country: US (occurrence: US)
  Receive Date: 20160802
  Receipt Date: 20160810
  Transmission Date: 20161109
  Serious: Yes (Other)
  Sender: FDA-Public Use
  Company Number: US-CELGENEUS-USA-2016077407

PATIENT
  Age: 69 Year
  Sex: Female
  Weight: 65.83 kg

DRUGS (10)
  1. REVLIMID [Suspect]
     Active Substance: LENALIDOMIDE
     Dosage: 20 MILLIGRAM
     Route: 048
     Dates: start: 2016
  2. XARELTO [Concomitant]
     Active Substance: RIVAROXABAN
     Indication: ANTICOAGULANT THERAPY
     Route: 048
     Dates: start: 20160602
  3. XARELTO [Concomitant]
     Active Substance: RIVAROXABAN
     Indication: ANTICOAGULANT THERAPY
  4. XARELTO [Concomitant]
     Active Substance: RIVAROXABAN
     Indication: PULMONARY EMBOLISM
  5. REVLIMID [Suspect]
     Active Substance: LENALIDOMIDE
     Indication: NON-HODGKIN^S LYMPHOMA
     Route: 048
     Dates: start: 201601
  6. REVLIMID [Suspect]
     Active Substance: LENALIDOMIDE
     Route: 048
     Dates: start: 20160610
  7. XARELTO [Concomitant]
     Active Substance: RIVAROXABAN
     Indication: DEEP VEIN THROMBOSIS
  8. MULTIVITAMIN [Concomitant]
     Active Substance: VITAMINS
     Indication: VITAMIN SUPPLEMENTATION
     Dosage: 81 MILLIGRAM
     Route: 065
  9. ASPIRIN LOW DOSE [Concomitant]
     Active Substance: ASPIRIN
     Indication: CARDIAC DISORDER
     Route: 048
     Dates: start: 20160602
  10. ASPIRIN LOW DOSE [Concomitant]
     Active Substance: ASPIRIN
     Indication: PROPHYLAXIS

REACTIONS (2)
  - Neutropenia [Not Recovered/Not Resolved]
  - Cytopenia [Recovered/Resolved]

NARRATIVE: CASE EVENT DATE: 20160712
